FAERS Safety Report 13894468 (Version 2)
Quarter: 2017Q3

REPORT INFORMATION
  Report Type: Report from Study
  Country: None (occurrence: RO)
  Receive Date: 20170823
  Receipt Date: 20170921
  Transmission Date: 20171127
  Serious: Yes (Hospitalization)
  Sender: FDA-Public Use
  Company Number: RO-ABBVIE-17K-135-2075532-00

PATIENT
  Age: 75 Year
  Sex: Male

DRUGS (8)
  1. CLOPIDOGREL [Concomitant]
     Active Substance: CLOPIDOGREL BISULFATE
     Indication: ISCHAEMIC CARDIOMYOPATHY
     Route: 048
  2. SORTIS [Concomitant]
     Active Substance: ATORVASTATIN
     Indication: DYSLIPIDAEMIA
     Route: 048
  3. TERTENSIF [Concomitant]
     Active Substance: INDAPAMIDE
     Indication: HYPERTENSION
     Route: 048
  4. GABARAN [Concomitant]
     Indication: PRODUCT USED FOR UNKNOWN INDICATION
     Route: 048
  5. PIRACETAM [Concomitant]
     Active Substance: PIRACETAM
     Indication: TOXICITY TO VARIOUS AGENTS
  6. LEPONEX [Concomitant]
     Active Substance: CLOZAPINE
     Indication: PRODUCT USED FOR UNKNOWN INDICATION
     Route: 048
  7. DUODOPA [Suspect]
     Active Substance: CARBIDOPA\LEVODOPA
     Indication: PARKINSON^S DISEASE
     Dosage: MD-10 ML CCR-8.3 ML/H ED-3.7ML EVENING MD-3ML CR-3.0 ML/H ED- 1.7 ML 24/24
     Route: 050
     Dates: start: 20140513
  8. NEBILET [Concomitant]
     Active Substance: NEBIVOLOL
     Indication: ISCHAEMIC CARDIOMYOPATHY
     Route: 048

REACTIONS (3)
  - Scrotal swelling [Unknown]
  - Inguinal hernia [Recovered/Resolved]
  - Pain [Unknown]

NARRATIVE: CASE EVENT DATE: 20170814
